FAERS Safety Report 8320405-6 (Version None)
Quarter: 2012Q2

REPORT INFORMATION
  Report Type: 
  Country: None (occurrence: None)
  Receive Date: 20120426
  Receipt Date: 20120426
  Transmission Date: 20120825
  Serious: Yes (Other)
  Sender: FDA-Public Use
  Company Number: None

PATIENT
  Age: 42 Year
  Sex: Female
  Weight: 120.2032 kg

DRUGS (2)
  1. SIMVASTATIN [Suspect]
     Indication: CARDIAC DISORDER
     Dosage: 20MG 1 TIME DAILY, EVE ORAL
     Route: 048
     Dates: start: 20111101, end: 20120401
  2. SIMVASTATIN [Suspect]
     Indication: DIABETES MELLITUS
     Dosage: 20MG 1 TIME DAILY, EVE ORAL
     Route: 048
     Dates: start: 20111101, end: 20120401

REACTIONS (8)
  - MUSCULAR WEAKNESS [None]
  - ARTHRALGIA [None]
  - HEADACHE [None]
  - DYSPEPSIA [None]
  - CHEST DISCOMFORT [None]
  - FATIGUE [None]
  - MENTAL IMPAIRMENT [None]
  - MEMORY IMPAIRMENT [None]
